FAERS Safety Report 13043440 (Version 1)
Quarter: 2016Q4

REPORT INFORMATION
  Report Type: Spontaneous
  Country: US (occurrence: US)
  Receive Date: 20161220
  Receipt Date: 20161220
  Transmission Date: 20170207
  Serious: No
  Sender: FDA-Public Use
  Company Number: US-BRISTOL-MYERS SQUIBB COMPANY-BMS-2016-106987

PATIENT
  Age: 77 Year
  Sex: Male

DRUGS (1)
  1. ABILIFY [Suspect]
     Active Substance: ARIPIPRAZOLE
     Indication: HUNTINGTON^S DISEASE
     Dosage: UNK
     Route: 065
     Dates: start: 2014

REACTIONS (4)
  - Choreoathetosis [Unknown]
  - Product use issue [Unknown]
  - Drug ineffective [Unknown]
  - Dysphonia [Unknown]
